FAERS Safety Report 24238209 (Version 1)
Quarter: 2024Q3

REPORT INFORMATION
  Report Type: Spontaneous
  Country: CA (occurrence: CA)
  Receive Date: 20240822
  Receipt Date: 20240822
  Transmission Date: 20241016
  Serious: Yes (Other)
  Sender: NOVARTIS
  Company Number: CA-002147023-NVSC2024CA168047

PATIENT
  Sex: Male

DRUGS (6)
  1. CANAKINUMAB [Suspect]
     Active Substance: CANAKINUMAB
     Indication: Juvenile idiopathic arthritis
     Dosage: UNK
     Route: 065
  2. METHOTREXATE [Suspect]
     Active Substance: METHOTREXATE
     Indication: Juvenile idiopathic arthritis
     Dosage: UNK
     Route: 065
  3. TOCILIZUMAB [Suspect]
     Active Substance: TOCILIZUMAB
     Indication: Juvenile idiopathic arthritis
     Dosage: UNK
     Route: 065
  4. TOFACITINIB [Suspect]
     Active Substance: TOFACITINIB
     Indication: Juvenile idiopathic arthritis
     Dosage: UNK
     Route: 065
  5. INFLIXIMAB [Concomitant]
     Active Substance: INFLIXIMAB
     Indication: Product used for unknown indication
     Dosage: UNK
     Route: 065
  6. SILTUXIMAB [Concomitant]
     Active Substance: SILTUXIMAB
     Indication: Product used for unknown indication
     Dosage: UNK
     Route: 065

REACTIONS (10)
  - Arthritis [Recovered/Resolved]
  - Atlantoaxial instability [Recovered/Resolved]
  - Cataract [Recovered/Resolved]
  - Cushingoid [Recovered/Resolved]
  - Hepatic steatosis [Recovered/Resolved]
  - Hypertension [Recovered/Resolved]
  - Osteopenia [Recovered/Resolved]
  - Osteoporotic fracture [Recovered/Resolved]
  - Short stature [Recovered/Resolved]
  - Drug ineffective [Recovered/Resolved]
